FAERS Safety Report 10191112 (Version 3)
Quarter: 2014Q2

REPORT INFORMATION
  Report Type: Spontaneous
  Country: JP (occurrence: None)
  Receive Date: 20140521
  Receipt Date: 20140530
  Transmission Date: 20141212
  Serious: Yes (Death, Hospitalization, Other)
  Sender: FDA-Public Use
  Company Number: ADR-2014-00841

PATIENT
  Age: 74 Year
  Sex: Male

DRUGS (1)
  1. GABALON [Suspect]
     Indication: SPINAL CORD DISORDER
     Dates: start: 20121025

REACTIONS (2)
  - Cerebellar infarction [None]
  - Thrombosis [None]
